FAERS Safety Report 9746450 (Version 1)
Quarter: 2013Q4

REPORT INFORMATION
  Report Type: Spontaneous
  Country: US (occurrence: None)
  Receive Date: 20131209
  Receipt Date: 20131209
  Transmission Date: 20140711
  Serious: No
  Sender: FDA-Public Use
  Company Number: None

PATIENT
  Age: 62 Year
  Sex: Female
  Weight: 90.72 kg

DRUGS (1)
  1. NARDIL [Suspect]
     Indication: DEPRESSION
     Dosage: 1 PILL 2X DAILY TWICE DAILY TAKEN BY MOUTH
     Route: 048
     Dates: start: 20131112, end: 20131208

REACTIONS (2)
  - Pain [None]
  - Arthralgia [None]
